FAERS Safety Report 7983265-9 (Version None)
Quarter: 2011Q4

REPORT INFORMATION
  Report Type: 
  Country: None (occurrence: None)
  Receive Date: 20111215
  Receipt Date: 20111209
  Transmission Date: 20120403
  Serious: Yes (Hospitalization, Other)
  Sender: FDA-Public Use
  Company Number: CH-ELI_LILLY_AND_COMPANY-CH201109004636

PATIENT
  Sex: Female
  Weight: 52 kg

DRUGS (3)
  1. EFFIENT [Suspect]
     Dosage: UNK, UNKNOWN
     Dates: end: 20110519
  2. AMITRIPTYLINE HYDROCHLORIDE [Concomitant]
     Indication: DEPRESSION
  3. EFFIENT [Suspect]
     Indication: PERCUTANEOUS CORONARY INTERVENTION
     Dosage: 60 MG, LOADING DOSE
     Dates: start: 20110220

REACTIONS (2)
  - IN-STENT ARTERIAL RESTENOSIS [None]
  - ANGINA PECTORIS [None]
